FAERS Safety Report 10038680 (Version 1)
Quarter: 2014Q1

REPORT INFORMATION
  Report Type: Spontaneous
  Country: US (occurrence: None)
  Receive Date: 20140306
  Receipt Date: 20140306
  Transmission Date: 20141002
  Serious: Yes (Other)
  Sender: FDA-Public Use
  Company Number: 163-21880-13073913

PATIENT
  Age: 57 Year
  Sex: Male
  Weight: 93.9 kg

DRUGS (13)
  1. REVLIMID (LENALIDOMIDE) (25 MILLIGRAM, CAPSULES) [Suspect]
     Indication: PLASMA CELL MYELOMA
     Route: 048
     Dates: start: 201001, end: 2010
  2. ZOMETA (ZOLEDRONIC ACID) [Concomitant]
  3. KYPROLIS (CARFILZOMIB) [Concomitant]
  4. ASA ACETYLSALICYLIC ACID) [Concomitant]
  5. MORPHINE (MORPHINE) [Concomitant]
  6. CALCIUM WITH VITAMIN D (CALCIUM WITH VITAMIN D) [Concomitant]
  7. DEXAMETHASONE (DEXAMETHASONE) [Concomitant]
  8. LORAZEPAM (LORAZEPAM) [Concomitant]
  9. IBUPROFEN (IBUPROFEN) [Concomitant]
  10. OMEPRAZOLE (OMEPRAZOLE) [Concomitant]
  11. DOCUSATE (DOCUSATE) [Concomitant]
  12. ALBUTEROL (SALBUTAMOL) [Concomitant]
  13. SPIRIVA [Concomitant]

REACTIONS (2)
  - Deep vein thrombosis [None]
  - Plasma cell myeloma [None]
